FAERS Safety Report 13699748 (Version 1)
Quarter: 2017Q2

REPORT INFORMATION
  Report Type: Other
  Country: IT (occurrence: IT)
  Receive Date: 20170629
  Receipt Date: 20170629
  Transmission Date: 20170830
  Serious: Yes (Other)
  Sender: FDA-Public Use
  Company Number: IT-TAKEDA-2017TEU002612

PATIENT
  Age: 78 Year
  Sex: Female

DRUGS (1)
  1. TANDEMACT [Suspect]
     Active Substance: GLIMEPIRIDE\PIOGLITAZONE HYDROCHLORIDE
     Indication: PRODUCT USED FOR UNKNOWN INDICATION
     Dosage: UNK UNK, QD
     Route: 048
     Dates: end: 20170606

REACTIONS (4)
  - Hypoglycaemia [Recovered/Resolved]
  - Temporomandibular joint syndrome [Recovered/Resolved]
  - Asthenia [Recovered/Resolved]
  - Psychomotor retardation [Recovered/Resolved]

NARRATIVE: CASE EVENT DATE: 20170606
